FAERS Safety Report 5201999-6 (Version None)
Quarter: 2007Q1

REPORT INFORMATION
  Report Type: 
  Country: None (occurrence: None)
  Receive Date: 20070104
  Receipt Date: 20070104
  Transmission Date: 20070707
  Serious: Yes (Hospitalization)
  Sender: FDA-Public Use
  Company Number: None

PATIENT
  Age: 28 Year
  Sex: Female
  Weight: 101.6057 kg

DRUGS (2)
  1. RITUXIMAB     1000MG     GENENTECH [Suspect]
     Indication: SYSTEMIC LUPUS ERYTHEMATOSUS
     Dosage: 1000MG   ONCE   IV DRIP
     Route: 041
     Dates: start: 20060429, end: 20060429
  2. PREDNISONE TAB [Suspect]
     Indication: SYSTEMIC LUPUS ERYTHEMATOSUS
     Dosage: 20 TO 50 MG  DAILY  PO
     Route: 048
     Dates: start: 20040101, end: 20061231

REACTIONS (1)
  - PNEUMOCYSTIS JIROVECI PNEUMONIA [None]
